FAERS Safety Report 20081707 (Version 1)
Quarter: 2021Q4

REPORT INFORMATION
  Report Type: Spontaneous
  Country: US (occurrence: None)
  Receive Date: 20211117
  Receipt Date: 20211117
  Transmission Date: 20220303
  Serious: No
  Sender: FDA-Public Use
  Company Number: None

PATIENT
  Sex: Male

DRUGS (1)
  1. ENBREL [Suspect]
     Active Substance: ETANERCEPT
     Indication: Brain neoplasm malignant
     Dosage: FREQUENCY : WEEKLY;?
     Route: 058
     Dates: start: 20210317, end: 20211016

REACTIONS (1)
  - Neoplasm malignant [None]
